FAERS Safety Report 12328859 (Version 1)
Quarter: 2016Q2

REPORT INFORMATION
  Report Type: Spontaneous
  Country: US (occurrence: US)
  Receive Date: 20160503
  Receipt Date: 20160503
  Transmission Date: 20160815
  Serious: No
  Sender: FDA-Public Use
  Company Number: US-BEH-2015051326

PATIENT
  Sex: Male
  Weight: 16 kg

DRUGS (11)
  1. HIZENTRA [Suspect]
     Active Substance: HUMAN IMMUNOGLOBULIN G
     Indication: HYPOGLOBULINAEMIA
     Route: 058
  2. PROVENTIL [Concomitant]
     Active Substance: ALBUTEROL
     Route: 055
  3. HIZENTRA [Suspect]
     Active Substance: HUMAN IMMUNOGLOBULIN G
     Dates: start: 20150123
  4. EPIPEN [Concomitant]
     Active Substance: EPINEPHRINE
     Indication: ANAPHYLACTIC REACTION
     Route: 030
  5. DIASTAT [Concomitant]
     Active Substance: DIAZEPAM
  6. DIPHENHYDRAMINE. [Concomitant]
     Active Substance: DIPHENHYDRAMINE
     Indication: ANAPHYLACTIC REACTION
     Route: 048
  7. ACETAMINOPHEN. [Concomitant]
     Active Substance: ACETAMINOPHEN
     Route: 048
  8. QVAR [Concomitant]
     Active Substance: BECLOMETHASONE DIPROPIONATE
     Route: 055
  9. PROBIOTIC [Concomitant]
     Active Substance: PROBIOTICS NOS
     Route: 048
  10. LIDOCAINE/PRILOCAINE [Concomitant]
     Dosage: PRIOR TO INFUSION
     Route: 061
  11. CEFDINIR. [Concomitant]
     Active Substance: CEFDINIR
     Route: 048

REACTIONS (2)
  - Rash papular [Unknown]
  - Infusion site rash [Unknown]
